FAERS Safety Report 5220711-8 (Version None)
Quarter: 2007Q1

REPORT INFORMATION
  Report Type: 
  Country: None (occurrence: None)
  Receive Date: 20070125
  Receipt Date: 20070125
  Transmission Date: 20070707
  Serious: Yes (Life-Threatening, Hospitalization)
  Sender: FDA-Public Use
  Company Number: None

PATIENT
  Age: 80 Year
  Sex: Male
  Weight: 86.6 kg

DRUGS (15)
  1. PLAVIX [Suspect]
     Indication: CARDIAC ARREST
     Dosage: 75MG 1 DAILY 047
     Dates: start: 20060213, end: 20061018
  2. ASPIRIN [Suspect]
     Indication: CEREBROVASCULAR ACCIDENT PROPHYLAXIS
     Dosage: 325MG 1 DAILY 047
     Dates: start: 19981116, end: 20061018
  3. CITALOPRAM HYDROBROMIDE [Concomitant]
  4. GLYBURIDE [Concomitant]
  5. INSULIN [Concomitant]
  6. SENNA [Concomitant]
  7. LISINOPRIL [Concomitant]
  8. DIGOXIN [Concomitant]
  9. METOPROLOL TARTRATE [Concomitant]
  10. RISPERDAL [Concomitant]
  11. SIMVASTATIN [Concomitant]
  12. FUROSEMIDE [Concomitant]
  13. SPIRONOLACTONE [Concomitant]
  14. TRIAMCINOLONE [Concomitant]
  15. ASCORBIC ACID [Concomitant]

REACTIONS (3)
  - CONFUSIONAL STATE [None]
  - FALL [None]
  - SUBDURAL HAEMATOMA [None]
